FAERS Safety Report 7038495-X (Version None)
Quarter: 2010Q4

REPORT INFORMATION
  Report Type: 
  Country: None (occurrence: None)
  Receive Date: 20101011
  Receipt Date: 20100626
  Transmission Date: 20110411
  Serious: No
  Sender: FDA-Public Use
  Company Number: US-PFIZER INC-2010080556

PATIENT
  Sex: Female
  Weight: 44 kg

DRUGS (4)
  1. GABAPENTIN [Suspect]
     Indication: VULVOVAGINAL PAIN
     Dosage: 300 MG, 3X/DAY
     Route: 048
     Dates: start: 20100201
  2. LYRICA [Suspect]
     Indication: VULVOVAGINAL PAIN
     Dosage: 75 MG, 3X/DAY
     Route: 048
     Dates: start: 20100604
  3. BENICAR [Concomitant]
     Indication: BLOOD PRESSURE INCREASED
     Dosage: 40 MG, UNK
  4. MAGNESIUM CITRATE [Concomitant]
     Indication: CONSTIPATION
     Dosage: UNK

REACTIONS (3)
  - ABDOMINAL DISCOMFORT [None]
  - CONSTIPATION [None]
  - TINNITUS [None]
